FAERS Safety Report 7269218-7 (Version None)
Quarter: 2011Q1

REPORT INFORMATION
  Report Type: 
  Country: None (occurrence: None)
  Receive Date: 20110124
  Receipt Date: 20110111
  Transmission Date: 20110831
  Serious: Yes (Death, Hospitalization)
  Sender: FDA-Public Use
  Company Number: B0695120A

PATIENT
  Age: 44 Year
  Sex: 0

DRUGS (7)
  1. OLANZAPINE [Suspect]
     Indication: DEPRESSION
     Dosage: ORAL
     Route: 048
  2. LEVOTHYROXINE SODIUM [Concomitant]
  3. VALSARTAN [Concomitant]
  4. QUETIAPINE [Suspect]
     Indication: DEPRESSION
  5. OMEPRAZOLE [Concomitant]
  6. PAROXETINE HYDROCHLORIDE [Suspect]
     Indication: DEPRESSION
     Dosage: ORAL
     Route: 048
  7. GABAPENTIN [Concomitant]

REACTIONS (11)
  - HYPOTENSION [None]
  - DRUG SCREEN POSITIVE [None]
  - HYPOTHERMIA [None]
  - BRAIN INJURY [None]
  - CEREBRAL INFARCTION [None]
  - HYPONATRAEMIA [None]
  - UNRESPONSIVE TO STIMULI [None]
  - COMA [None]
  - BODY TEMPERATURE INCREASED [None]
  - CARDIAC ARREST [None]
  - ELECTROCARDIOGRAM ST SEGMENT DEPRESSION [None]
